FAERS Safety Report 23991641 (Version 2)
Quarter: 2024Q2

REPORT INFORMATION
  Report Type: Spontaneous
  Country: US (occurrence: US)
  Receive Date: 20240619
  Receipt Date: 20240628
  Transmission Date: 20240716
  Serious: No
  Sender: FDA-Public Use
  Company Number: US-ELI_LILLY_AND_COMPANY-US202406013397

PATIENT
  Age: 42 Year

DRUGS (8)
  1. ZEPBOUND [Suspect]
     Active Substance: TIRZEPATIDE
     Indication: Type 2 diabetes mellitus
     Dosage: 2.5 MG, UNKNOWN
     Route: 065
     Dates: start: 20240608
  2. ZEPBOUND [Suspect]
     Active Substance: TIRZEPATIDE
     Indication: Type 2 diabetes mellitus
     Dosage: 2.5 MG, UNKNOWN
     Route: 065
     Dates: start: 20240608
  3. ZEPBOUND [Suspect]
     Active Substance: TIRZEPATIDE
     Indication: Type 2 diabetes mellitus
     Dosage: 2.5 MG, UNKNOWN
     Route: 065
     Dates: start: 20240608
  4. ZEPBOUND [Suspect]
     Active Substance: TIRZEPATIDE
     Indication: Type 2 diabetes mellitus
     Dosage: 2.5 MG, UNKNOWN
     Route: 065
     Dates: start: 20240608
  5. ZEPBOUND [Suspect]
     Active Substance: TIRZEPATIDE
     Indication: Obesity
  6. ZEPBOUND [Suspect]
     Active Substance: TIRZEPATIDE
     Indication: Obesity
  7. ZEPBOUND [Suspect]
     Active Substance: TIRZEPATIDE
     Indication: Obesity
  8. ZEPBOUND [Suspect]
     Active Substance: TIRZEPATIDE
     Indication: Obesity

REACTIONS (1)
  - Accidental underdose [Unknown]

NARRATIVE: CASE EVENT DATE: 20240615
